FAERS Safety Report 19211733 (Version 1)
Quarter: 2021Q2

REPORT INFORMATION
  Report Type: Spontaneous
  Country: US (occurrence: US)
  Receive Date: 20210504
  Receipt Date: 20210504
  Transmission Date: 20210717
  Serious: Yes (Death)
  Sender: FDA-Public Use
  Company Number: None

PATIENT
  Age: 70 Year
  Sex: Male

DRUGS (12)
  1. LORATADINE. [Concomitant]
     Active Substance: LORATADINE
  2. VALSARTAN. [Concomitant]
     Active Substance: VALSARTAN
  3. ALBUTEROL. [Concomitant]
     Active Substance: ALBUTEROL
  4. ZYKADIA [Suspect]
     Active Substance: CERITINIB
     Indication: LUNG CARCINOMA CELL TYPE UNSPECIFIED STAGE 0
     Route: 048
     Dates: start: 20180202, end: 20210418
  5. BREO ELLIPTA [Concomitant]
     Active Substance: FLUTICASONE FUROATE\VILANTEROL TRIFENATATE
  6. LIDOCAINE. [Concomitant]
     Active Substance: LIDOCAINE
  7. ASPIRIN. [Concomitant]
     Active Substance: ASPIRIN
  8. MIDODRINE [Concomitant]
     Active Substance: MIDODRINE
  9. TAMSULOSIN [Concomitant]
     Active Substance: TAMSULOSIN
  10. ATORVASTATIN [Concomitant]
     Active Substance: ATORVASTATIN
  11. MEMANTINE. [Concomitant]
     Active Substance: MEMANTINE
  12. PANTOPRAZOLE [Concomitant]
     Active Substance: PANTOPRAZOLE

REACTIONS (1)
  - Death [None]

NARRATIVE: CASE EVENT DATE: 20210418
